FAERS Safety Report 9614716 (Version 2)
Quarter: 2013Q4

REPORT INFORMATION
  Report Type: Spontaneous
  Country: US (occurrence: US)
  Receive Date: 20131011
  Receipt Date: 20131016
  Transmission Date: 20140711
  Serious: Yes (Death)
  Sender: FDA-Public Use
  Company Number: US-ASTELLAS-2013US010499

PATIENT
  Age: 67 Year
  Sex: Female

DRUGS (2)
  1. LOVENOX [Concomitant]
     Indication: THROMBOSIS
     Dosage: 90 MG, BID
     Route: 058
     Dates: start: 20130827
  2. TARCEVA [Suspect]
     Indication: LUNG NEOPLASM MALIGNANT
     Dosage: 150 MG, UID/QD
     Route: 048
     Dates: start: 20130515, end: 201308

REACTIONS (2)
  - Drug ineffective [Unknown]
  - Death [Fatal]
